FAERS Safety Report 12463883 (Version 2)
Quarter: 2016Q3

REPORT INFORMATION
  Report Type: Report from Study
  Country: AU (occurrence: AU)
  Receive Date: 20160614
  Receipt Date: 20160718
  Transmission Date: 20161109
  Serious: Yes (Hospitalization, Other)
  Sender: FDA-Public Use
  Company Number: AU-ABBVIE-16K-008-1645506-00

PATIENT
  Sex: Male

DRUGS (5)
  1. HUMIRA [Suspect]
     Active Substance: ADALIMUMAB
     Indication: CROHN^S DISEASE
     Route: 058
  2. HUMIRA [Suspect]
     Active Substance: ADALIMUMAB
     Dosage: 40MG X 4
     Route: 058
  3. PREDNISOLONE. [Suspect]
     Active Substance: PREDNISOLONE
     Indication: PRODUCT USED FOR UNKNOWN INDICATION
     Route: 065
  4. HUMIRA [Suspect]
     Active Substance: ADALIMUMAB
     Indication: COLITIS ULCERATIVE
     Route: 058
  5. PREDNISOLONE. [Suspect]
     Active Substance: PREDNISOLONE
     Route: 065

REACTIONS (11)
  - Coeliac disease [Recovering/Resolving]
  - Malaise [Unknown]
  - Insomnia [Recovering/Resolving]
  - Skin haemorrhage [Recovering/Resolving]
  - Crohn^s disease [Recovered/Resolved]
  - Colitis ulcerative [Unknown]
  - Localised infection [Recovering/Resolving]
  - Crohn^s disease [Unknown]
  - Localised infection [Unknown]
  - Foot fracture [Recovering/Resolving]
  - Increased tendency to bruise [Recovering/Resolving]
